FAERS Safety Report 16677579 (Version 1)
Quarter: 2019Q3

REPORT INFORMATION
  Report Type: Spontaneous
  Country: US (occurrence: US)
  Receive Date: 20190621
  Receipt Date: 20190621
  Transmission Date: 20191004
  Serious: Yes (Hospitalization)
  Sender: FDA-Public Use
  Company Number: None

PATIENT
  Age: 69 Year
  Sex: Female
  Weight: 58 kg

DRUGS (1)
  1. RITUXIMAB (MOAB C2B8 ANTI CD20, CHIMERIC) [Suspect]
     Active Substance: RITUXIMAB
     Dates: end: 20190330

REACTIONS (6)
  - Spinal laminectomy [None]
  - Spinal fusion surgery [None]
  - Bone graft [None]
  - Arthrodesis [None]
  - Spinal decompression [None]
  - Internal fixation of spine [None]

NARRATIVE: CASE EVENT DATE: 20190610
